FAERS Safety Report 18611369 (Version 4)
Quarter: 2021Q1

REPORT INFORMATION
  Report Type: Spontaneous
  Country: US (occurrence: US)
  Receive Date: 20201214
  Receipt Date: 20210301
  Transmission Date: 20210419
  Serious: Yes (Other)
  Sender: FDA-Public Use
  Company Number: US-PFIZER INC-2020485175

PATIENT
  Age: 65 Year
  Sex: Female
  Weight: 58.51 kg

DRUGS (4)
  1. LETROZOLE. [Concomitant]
     Active Substance: LETROZOLE
     Dosage: UNK
  2. IBRANCE [Suspect]
     Active Substance: PALBOCICLIB
     Indication: BREAST CANCER STAGE IV
     Dosage: 75 MG, CYCLIC (75 MG DAILY BY MOUTH FOR 21 DAYS; 7 DAYS OFF)
     Route: 048
     Dates: start: 202010
  3. IBRANCE [Suspect]
     Active Substance: PALBOCICLIB
     Indication: NEOPLASM MALIGNANT
     Dosage: 100 MG
  4. IBRANCE [Suspect]
     Active Substance: PALBOCICLIB
     Indication: METASTASES TO LIVER
     Dosage: 75 MG, CYCLIC (75 MG DAILY BY MOUTH FOR 21 DAYS; 7 DAYS OFF)
     Route: 048
     Dates: start: 20201104

REACTIONS (3)
  - Tumour marker increased [Unknown]
  - Radiation oesophagitis [Unknown]
  - White blood cell count decreased [Unknown]

NARRATIVE: CASE EVENT DATE: 20201124
